FAERS Safety Report 25156342 (Version 1)
Quarter: 2025Q2

REPORT INFORMATION
  Report Type: Spontaneous
  Country: US (occurrence: None)
  Receive Date: 20250403
  Receipt Date: 20250403
  Transmission Date: 20250716
  Serious: Yes (Hospitalization)
  Sender: FDA-CTU
  Company Number: None

PATIENT
  Age: 52 Year
  Sex: Female
  Weight: 63 kg

DRUGS (1)
  1. JARDIANCE [Suspect]
     Active Substance: EMPAGLIFLOZIN
     Indication: Diabetes mellitus
     Dosage: OTHER QUANTITY : 1 TABLET(S);?FREQUENCY : DAILY;?
     Route: 048
     Dates: start: 20240101, end: 20240214

REACTIONS (5)
  - Heart rate increased [None]
  - Cerebrovascular accident [None]
  - Myocardial infarction [None]
  - Diabetic ketoacidosis [None]
  - Anaphylactic shock [None]

NARRATIVE: CASE EVENT DATE: 20240214
